FAERS Safety Report 19171882 (Version 1)
Quarter: 2021Q2

REPORT INFORMATION
  Report Type: Spontaneous
  Country: US (occurrence: US)
  Receive Date: 20210423
  Receipt Date: 20210423
  Transmission Date: 20210717
  Serious: Yes (Other)
  Sender: FDA-Public Use
  Company Number: US-SA-2021SA129001

PATIENT
  Age: 45 Year
  Sex: Female

DRUGS (1)
  1. ZANTAC [Suspect]
     Active Substance: RANITIDINE HYDROCHLORIDE
     Indication: HYPERCHLORHYDRIA
     Dosage: 150 MG: QD
     Dates: start: 199501, end: 201901

REACTIONS (2)
  - Ovarian cancer stage IV [Unknown]
  - Colorectal cancer stage IV [Unknown]

NARRATIVE: CASE EVENT DATE: 20170301
